FAERS Safety Report 5463239-2 (Version None)
Quarter: 2007Q3

REPORT INFORMATION
  Report Type: 
  Country: None (occurrence: None)
  Receive Date: 20070920
  Receipt Date: 20070912
  Transmission Date: 20080115
  Serious: Yes (Death)
  Sender: FDA-Public Use
  Company Number: US-MERCK-0709USA02594

PATIENT
  Age: 35 Year
  Sex: Male

DRUGS (5)
  1. PRIMAXIN [Suspect]
     Indication: MYCOBACTERIUM ABSCESSUS INFECTION
     Route: 065
  2. CIPROFLOXACIN [Concomitant]
     Indication: MYCOBACTERIUM ABSCESSUS INFECTION
     Route: 065
  3. CLARITHROMYCIN [Concomitant]
     Indication: MYCOBACTERIUM ABSCESSUS INFECTION
     Route: 065
  4. AMIKACIN SULFATE [Concomitant]
     Indication: MYCOBACTERIUM ABSCESSUS INFECTION
     Route: 065
  5. MEROPENEM [Concomitant]
     Indication: MYCOBACTERIUM ABSCESSUS INFECTION
     Route: 065

REACTIONS (2)
  - BLOOD CULTURE POSITIVE [None]
  - ENDOCARDITIS [None]
